FAERS Safety Report 6640676-1 (Version None)
Quarter: 2010Q1

REPORT INFORMATION
  Report Type: 
  Country: None (occurrence: None)
  Receive Date: 20100318
  Receipt Date: 20100316
  Transmission Date: 20100710
  Serious: Yes (Hospitalization)
  Sender: FDA-Public Use
  Company Number: FR-WYE-G05758810

PATIENT
  Age: 76 Year
  Sex: Female

DRUGS (7)
  1. ADVIL LIQUI-GELS [Suspect]
     Dosage: UNKNOWN
     Route: 048
     Dates: end: 20090602
  2. FUROSEMIDE [Suspect]
     Route: 048
     Dates: end: 20090602
  3. AMAREL [Concomitant]
     Indication: DIABETES MELLITUS
     Route: 048
  4. GLUCOR [Concomitant]
     Indication: DIABETES MELLITUS
     Dosage: ONE TABLET TWICE DAILY
     Route: 048
  5. VASTAREL [Concomitant]
     Route: 048
  6. GLUCOPHAGE [Suspect]
     Indication: DIABETES MELLITUS
     Route: 048
     Dates: end: 20090602
  7. PRITOR [Suspect]
     Route: 048
     Dates: end: 20090602

REACTIONS (2)
  - LACTIC ACIDOSIS [None]
  - RENAL FAILURE ACUTE [None]
